FAERS Safety Report 7708073-5 (Version None)
Quarter: 2011Q3

REPORT INFORMATION
  Report Type: 
  Country: None (occurrence: None)
  Receive Date: 20110825
  Receipt Date: 20110815
  Transmission Date: 20111222
  Serious: Yes (Hospitalization)
  Sender: FDA-Public Use
  Company Number: KR-BRISTOL-MYERS SQUIBB COMPANY-15971948

PATIENT
  Age: 42 Year
  Sex: Male

DRUGS (6)
  1. CILOSTAZOL [Suspect]
  2. PACLITAXEL [Suspect]
     Dosage: PACLITAXEL ELUTING STENT.
  3. WARFARIN SODIUM [Suspect]
  4. SIROLIMUS [Suspect]
     Dosage: SIROLIMUS ELUTING STENT.
  5. CLOPIDOGREL BISULFATE [Suspect]
  6. ASPIRIN [Suspect]

REACTIONS (2)
  - ACUTE MYOCARDIAL INFARCTION [None]
  - STENT EMBOLISATION [None]
